FAERS Safety Report 8977697 (Version 1)
Quarter: 2012Q4

REPORT INFORMATION
  Report Type: 
  Country: AT (occurrence: AT)
  Receive Date: 20121220
  Receipt Date: 20121220
  Transmission Date: 20130627
  Serious: Yes (Death)
  Sender: FDA-Public Use
  Company Number: AT-GENZYME-CERZ-1002744

PATIENT
  Age: 50 Year
  Sex: Male

DRUGS (1)
  1. CEREZYME [Suspect]
     Indication: GAUCHER^S DISEASE
     Dosage: UNK
     Route: 042
     Dates: start: 2010, end: 201210

REACTIONS (2)
  - Death [Fatal]
  - Treatment noncompliance [Fatal]
